FAERS Safety Report 8010068-1 (Version None)
Quarter: 2011Q4

REPORT INFORMATION
  Report Type: 
  Country: None (occurrence: None)
  Receive Date: 20111123
  Receipt Date: 20110826
  Transmission Date: 20120403
  Serious: No
  Sender: FDA-Public Use
  Company Number: 334466

PATIENT
  Age: 61 Year
  Sex: Female
  Weight: 122.4712 kg

DRUGS (5)
  1. GLUCOTROL [Concomitant]
  2. VICTOZA [Suspect]
     Indication: WEIGHT CONTROL
     Dosage: 0.6 MG, QD, SUBCUTANEOUS
     Route: 058
     Dates: start: 20110811
  3. VICTOZA [Suspect]
     Indication: TYPE 2 DIABETES MELLITUS
     Dosage: 0.6 MG, QD, SUBCUTANEOUS
     Route: 058
     Dates: start: 20110811
  4. METFORMIN HCL [Concomitant]
  5. JANUVIA [Concomitant]

REACTIONS (8)
  - INSOMNIA [None]
  - ASTHENIA [None]
  - DIZZINESS [None]
  - VOMITING [None]
  - CONSTIPATION [None]
  - DYSPEPSIA [None]
  - HAEMATOCHEZIA [None]
  - BLOOD GLUCOSE INCREASED [None]
